FAERS Safety Report 8346248-5 (Version None)
Quarter: 2012Q2

REPORT INFORMATION
  Report Type: 
  Country: None (occurrence: None)
  Receive Date: 20120507
  Receipt Date: 20120426
  Transmission Date: 20120825
  Serious: Yes (Hospitalization)
  Sender: FDA-Public Use
  Company Number: UTC-018163

PATIENT
  Age: 28 Year
  Sex: Female
  Weight: 71.4 kg

DRUGS (3)
  1. REMODULIN [Suspect]
     Indication: PULMONARY ARTERIAL HYPERTENSION
     Dosage: 158.4 UG/KG (0.11 UG/KG,1 IN 1 MIN),SUBCUTANEOUS
     Route: 058
     Dates: start: 20110903
  2. TRACLEER [Suspect]
  3. TADALAFIL [Suspect]

REACTIONS (1)
  - HAEMOPTYSIS [None]
